FAERS Safety Report 18566640 (Version 1)
Quarter: 2020Q4

REPORT INFORMATION
  Report Type: Report from Study
  Country: ZA (occurrence: ZA)
  Receive Date: 20201201
  Receipt Date: 20201201
  Transmission Date: 20210114
  Serious: Yes (Other)
  Sender: FDA-Public Use
  Company Number: NVSC2020ZA316577

PATIENT
  Sex: Male

DRUGS (3)
  1. COSENTYX [Suspect]
     Active Substance: SECUKINUMAB
     Indication: ANKYLOSING SPONDYLITIS
     Dosage: 150 MG, QW
     Route: 058
     Dates: start: 20201024
  2. ARCOXIA [Suspect]
     Active Substance: ETORICOXIB
     Indication: INFLAMMATION
  3. ARCOXIA [Suspect]
     Active Substance: ETORICOXIB
     Indication: PAIN
     Route: 065

REACTIONS (3)
  - Inflammation [Unknown]
  - Pain [Unknown]
  - Drug dependence [Unknown]
